FAERS Safety Report 15751921 (Version 1)
Quarter: 2018Q4

REPORT INFORMATION
  Report Type: Spontaneous
  Country: CA (occurrence: CA)
  Receive Date: 20181221
  Receipt Date: 20181221
  Transmission Date: 20190205
  Serious: Yes (Death)
  Sender: FDA-Public Use
  Company Number: CA-ENDO PHARMACEUTICALS INC-2018-043907

PATIENT
  Age: 77 Year
  Sex: Male

DRUGS (1)
  1. XIAFLEX [Suspect]
     Active Substance: COLLAGENASE CLOSTRIDIUM HISTOLYTICUM
     Indication: DUPUYTREN^S CONTRACTURE
     Dosage: UNK, UNKNOWN, ONE INJECTION AS DIRECTED BY MD
     Route: 065
     Dates: end: 20180816

REACTIONS (1)
  - Death [Fatal]

NARRATIVE: CASE EVENT DATE: 20181125
